FAERS Safety Report 9338680 (Version 1)
Quarter: 2013Q2

REPORT INFORMATION
  Report Type: Spontaneous
  Country: MX (occurrence: US)
  Receive Date: 20130610
  Receipt Date: 20130610
  Transmission Date: 20140414
  Serious: No
  Sender: FDA-Public Use
  Company Number: US-BRISTOL-MYERS SQUIBB COMPANY-17388620

PATIENT
  Age: 24 Year
  Sex: Male
  Weight: 85 kg

DRUGS (2)
  1. STOCRIN TABS [Suspect]
     Indication: HIV INFECTION
     Dosage: 2011-JAN-2013(QD AT NIGHT)?FEB2013-ONG (1DF,QD,ORAL)
     Route: 048
     Dates: start: 2011
  2. TRUVADA [Concomitant]
     Dosage: TABS

REACTIONS (4)
  - Suspected counterfeit product [Recovered/Resolved]
  - Urticaria [Not Recovered/Not Resolved]
  - Pruritus [Not Recovered/Not Resolved]
  - Erythema [Not Recovered/Not Resolved]
